FAERS Safety Report 15172654 (Version 4)
Quarter: 2018Q3

REPORT INFORMATION
  Report Type: Spontaneous
  Country: PT (occurrence: PT)
  Receive Date: 20180720
  Receipt Date: 20180912
  Transmission Date: 20181010
  Serious: Yes (Disabling)
  Sender: FDA-Public Use
  Company Number: PT-MYLANLABS-2018M1053872

PATIENT
  Age: 78 Year
  Sex: Female
  Weight: 68 kg

DRUGS (23)
  1. TRAMADOL. [Suspect]
     Active Substance: TRAMADOL
     Dosage: 1 DF, QD
     Route: 048
     Dates: start: 20170811, end: 20170824
  2. PARACETAMOL [Suspect]
     Active Substance: ACETAMINOPHEN
     Dosage: 1 G, UNK,AS REQUIRED
     Route: 048
     Dates: start: 20170817, end: 20170823
  3. TENORMIN [Concomitant]
     Active Substance: ATENOLOL
     Indication: HYPERTENSION
     Dosage: 50 MG, QD
     Route: 048
     Dates: start: 1991
  4. TRAMADOL. [Suspect]
     Active Substance: TRAMADOL
     Dosage: 1 DF, UNK
     Route: 042
  5. NOLOTIL                            /06276702/ [Suspect]
     Active Substance: METAMIZOLE MAGNESIUM
     Indication: OSTEOPOROSIS PROPHYLAXIS
     Dosage: 1 DF, QD
     Route: 042
     Dates: start: 20170810, end: 20170816
  6. TRAMADOL. [Suspect]
     Active Substance: TRAMADOL
     Indication: OSTEOARTHRITIS
     Dosage: 1 DF, QD
     Route: 042
     Dates: start: 20170810, end: 20170817
  7. PARACETAMOL [Suspect]
     Active Substance: ACETAMINOPHEN
     Indication: OSTEOARTHRITIS
     Dosage: 1 DF, QD
     Route: 042
     Dates: start: 20170810, end: 20170817
  8. PARACETAMOL [Suspect]
     Active Substance: ACETAMINOPHEN
     Dosage: 1 G, QD
     Route: 048
     Dates: start: 20170824, end: 20170920
  9. NOLOTIL                            /06276702/ [Suspect]
     Active Substance: METAMIZOLE MAGNESIUM
     Indication: OSTEOARTHRITIS
     Dosage: INJECTION, SOLUTION
     Route: 042
  10. CARTIA                             /00002701/ [Concomitant]
     Active Substance: ASPIRIN
     Indication: PROPHYLAXIS
     Dosage: 100 MG EM DIAS ALTERNADOS
     Route: 048
     Dates: start: 1992
  11. ATENOLOL. [Concomitant]
     Active Substance: ATENOLOL
     Indication: PRODUCT USED FOR UNKNOWN INDICATION
     Dosage: UNK
     Route: 065
  12. TRAMADOL. [Suspect]
     Active Substance: TRAMADOL
     Indication: OSTEOARTHRITIS
     Dosage: 200 MG, QD
     Route: 048
     Dates: start: 201708, end: 20171003
  13. TRAMADOL. [Suspect]
     Active Substance: TRAMADOL
     Dosage: 1 DF, QD
     Route: 048
     Dates: start: 20170817, end: 20170824
  14. TRIDURAL [Suspect]
     Active Substance: TRAMADOL HYDROCHLORIDE
     Indication: OSTEOARTHRITIS
     Dosage: 100 MG, BID,TABLET, EXTENDED RELEASE
     Route: 048
     Dates: start: 20170810
  15. PARACETAMOL [Suspect]
     Active Substance: ACETAMINOPHEN
     Dosage: 1 G, UNK
     Route: 048
     Dates: start: 201708, end: 20170823
  16. TRIDURAL [Suspect]
     Active Substance: TRAMADOL HYDROCHLORIDE
     Dosage: 200 MG, 12 HOUR
     Route: 048
     Dates: start: 20170824, end: 20171003
  17. DIAMICRON LM [Concomitant]
     Active Substance: GLICLAZIDE
     Indication: GLUCOSE TOLERANCE IMPAIRED
  18. AMLODIPINE [Concomitant]
     Active Substance: AMLODIPINE BESYLATE
     Indication: HYPERTENSION
     Dosage: 5 MG, QD
     Route: 048
     Dates: start: 2012
  19. OMEPRAZOLE. [Concomitant]
     Active Substance: OMEPRAZOLE
     Indication: PROPHYLAXIS AGAINST GASTROINTESTINAL ULCER
     Dosage: 20 MG, QD
     Route: 048
     Dates: start: 20080101
  20. CARTIA                             /00002701/ [Concomitant]
     Active Substance: ASPIRIN
     Dosage: 200 MG, QD
     Dates: start: 1992
  21. HYTACAND [Concomitant]
     Active Substance: CANDESARTAN CILEXETIL\HYDROCHLOROTHIAZIDE
     Indication: HYPERTENSION
     Dosage: 1 DF, QD
     Route: 048
     Dates: start: 1991
  22. DIAMICRON LM [Concomitant]
     Active Substance: GLICLAZIDE
     Indication: BLOOD GLUCOSE INCREASED
     Dosage: 30 MG, QD
     Route: 048
     Dates: start: 2015
  23. FOSAVANCE [Concomitant]
     Active Substance: ALENDRONATE SODIUM\CHOLECALCIFEROL
     Indication: OSTEOPOROSIS PROPHYLAXIS
     Dosage: 1 DF, QW,FORM OD ADMIN: 1 COMPRIMIDO/SEMANA
     Route: 048

REACTIONS (12)
  - Heart rate increased [Recovered/Resolved]
  - Micturition frequency decreased [Recovered/Resolved]
  - Diarrhoea [Recovered/Resolved]
  - Tremor [Recovered/Resolved]
  - Vomiting [Recovered/Resolved]
  - Constipation [Recovered/Resolved]
  - Decreased appetite [Recovered/Resolved]
  - Hallucination, visual [Recovered/Resolved]
  - Flatulence [Recovered/Resolved]
  - Abdominal distension [Recovered/Resolved]
  - Nausea [Recovered/Resolved]
  - Cachexia [Recovered/Resolved]

NARRATIVE: CASE EVENT DATE: 20170801
